FAERS Safety Report 13397715 (Version 3)
Quarter: 2017Q2

REPORT INFORMATION
  Report Type: Spontaneous
  Country: IT (occurrence: IT)
  Receive Date: 20170403
  Receipt Date: 20170504
  Transmission Date: 20170830
  Serious: Yes (Other)
  Sender: FDA-Public Use
  Company Number: IT-PFIZER INC-2017140680

PATIENT
  Age: 59 Year
  Sex: Male

DRUGS (2)
  1. XANAX [Suspect]
     Active Substance: ALPRAZOLAM
     Dosage: UNK
  2. XANAX [Suspect]
     Active Substance: ALPRAZOLAM
     Dosage: 20 DF, UNK
     Dates: start: 20170124, end: 20170124

REACTIONS (3)
  - Drug use disorder [Unknown]
  - Irritability [Unknown]
  - Repetitive speech [Unknown]

NARRATIVE: CASE EVENT DATE: 20170124
